FAERS Safety Report 6158279-4 (Version None)
Quarter: 2009Q2

REPORT INFORMATION
  Report Type: 
  Country: None (occurrence: None)
  Receive Date: 20090417
  Receipt Date: 20090406
  Transmission Date: 20091009
  Serious: Yes (Disabling)
  Sender: FDA-Public Use
  Company Number: CA-ASTRAZENECA-2009SE01502

PATIENT
  Age: 65 Year
  Sex: Female

DRUGS (6)
  1. RENEDIL [Suspect]
     Indication: HYPERTENSION
     Route: 048
     Dates: end: 20080301
  2. RENEDIL [Suspect]
     Route: 048
     Dates: start: 20080301, end: 20080330
  3. RENEDIL [Suspect]
     Route: 048
     Dates: start: 20080331
  4. FEMARA [Suspect]
     Indication: BREAST CANCER
     Route: 048
     Dates: start: 20081101, end: 20081101
  5. DIOVAN [Concomitant]
     Indication: HYPERTENSION
     Route: 048
     Dates: start: 20020101
  6. JOINT FORMULA [Concomitant]

REACTIONS (3)
  - DIZZINESS [None]
  - HEADACHE [None]
  - MUSCULAR WEAKNESS [None]
